FAERS Safety Report 5683139-2 (Version None)
Quarter: 2008Q1

REPORT INFORMATION
  Report Type: 
  Country: None (occurrence: None)
  Receive Date: 20080327
  Receipt Date: 20080321
  Transmission Date: 20080703
  Serious: Yes (Hospitalization, Other)
  Sender: FDA-Public Use
  Company Number: US-ELI_LILLY_AND_COMPANY-US200803005286

PATIENT
  Sex: Male
  Weight: 91.156 kg

DRUGS (16)
  1. BYETTA [Suspect]
     Dosage: 5 UG, 2/D
     Route: 058
     Dates: start: 20080101, end: 20080201
  2. BYETTA [Suspect]
     Dosage: 10 UG, 2/D
     Route: 058
     Dates: start: 20080201
  3. BUMETANIDE [Concomitant]
     Indication: FLUID RETENTION
     Dosage: 12 MG, 2/D
     Route: 065
     Dates: start: 20070101
  4. GLYBURIDE [Concomitant]
     Indication: DIABETES MELLITUS
     Dosage: UNK, EACH EVENING
     Route: 065
  5. ASPIRIN [Concomitant]
     Indication: CARDIAC DISORDER
     Dosage: 81 MG, DAILY (1/D)
     Route: 065
     Dates: start: 19930101
  6. NITROGLYCERIN [Concomitant]
     Indication: CARDIAC DISORDER
     Dosage: 9 MG, 2/D
     Route: 065
     Dates: start: 19970101
  7. METFORMIN [Concomitant]
     Indication: DIABETES MELLITUS
     Dosage: 500 MG, 2/D
     Route: 065
  8. POTASSIUM CHLORIDE [Concomitant]
     Dosage: 20 MG, 2/D
     Route: 065
  9. COREG [Concomitant]
     Indication: CARDIAC DISORDER
     Dosage: 25 MG, 2/D
     Dates: start: 19980101
  10. COZAAR [Concomitant]
     Indication: CARDIAC DISORDER
     Dosage: 50 MG, DAILY (1/D)
  11. MAGNESIUM OXIDE [Concomitant]
     Dosage: 400 MG, 2/D
  12. LANOXIN [Concomitant]
     Indication: CARDIAC DISORDER
     Dosage: 125 MG, DAILY (1/D)
  13. LIPITOR [Concomitant]
     Indication: BLOOD CHOLESTEROL
     Dosage: 10 MG, DAILY (1/D)
  14. SOTALOL [Concomitant]
     Dosage: 120 MG, 2/D
     Route: 065
  15. INSPRA [Concomitant]
     Indication: BREAST PAIN
     Dosage: 12.5 MG, DAILY (1/D)
     Dates: start: 20060101
  16. OXYGEN [Concomitant]
     Indication: DYSPNOEA
     Dosage: UNK, AS NEEDED
     Route: 065
     Dates: start: 20070101

REACTIONS (7)
  - ASTHMA [None]
  - BLOOD GLUCOSE DECREASED [None]
  - BLOOD GLUCOSE INCREASED [None]
  - CARDIAC DISORDER [None]
  - DIZZINESS [None]
  - DYSPNOEA [None]
  - WEIGHT DECREASED [None]
